FAERS Safety Report 5286048-6 (Version None)
Quarter: 2007Q2

REPORT INFORMATION
  Report Type: 
  Country: None (occurrence: None)
  Receive Date: 20070404
  Receipt Date: 20070402
  Transmission Date: 20071010
  Serious: Yes (Death)
  Sender: FDA-Public Use
  Company Number: US-BRISTOL-MYERS SQUIBB COMPANY-13736194

PATIENT
  Sex: Male

DRUGS (2)
  1. GLUCOPHAGE [Suspect]
  2. PLAVIX [Suspect]

REACTIONS (1)
  - DEMENTIA ALZHEIMER'S TYPE [None]
